FAERS Safety Report 15795711 (Version 1)
Quarter: 2019Q1

REPORT INFORMATION
  Report Type: Report from Study
  Country: DK (occurrence: DK)
  Receive Date: 20190107
  Receipt Date: 20190107
  Transmission Date: 20190417
  Serious: Yes (Other)
  Sender: FDA-Public Use
  Company Number: DK-MYLANLABS-2019M1000347

PATIENT
  Age: 65 Year
  Sex: Female

DRUGS (4)
  1. FLUDARABINE [Suspect]
     Active Substance: FLUDARABINE PHOSPHATE
     Indication: OVARIAN CANCER METASTATIC
     Dosage: 25 MG/M 2 ON DAY -5 TO -1
     Route: 041
  2. CYCLOPHOSPHAMIDE. [Suspect]
     Active Substance: CYCLOPHOSPHAMIDE
     Indication: OVARIAN CANCER METASTATIC
     Dosage: 60 MG/KG ON DAY -7 AND -6
     Route: 041
  3. FILGRASTIM [Concomitant]
     Active Substance: FILGRASTIM
     Indication: PRODUCT USED FOR UNKNOWN INDICATION
     Route: 065
  4. ALDESLEUKIN [Suspect]
     Active Substance: ALDESLEUKIN
     Indication: OVARIAN CANCER METASTATIC
     Dosage: 18 MIU/M 2 FOR 6, 12 AND 24 HOURS FOLLOWED BY 4.5 MIU/M 2 FOR 24 HOURS FOR UP TO THREE DAYS
     Route: 041

REACTIONS (6)
  - Hyponatraemia [Recovered/Resolved]
  - Lymphopenia [Recovered/Resolved]
  - Febrile neutropenia [Recovered/Resolved]
  - Anaemia [Recovered/Resolved]
  - Hypophosphataemia [Recovered/Resolved]
  - Thrombocytopenia [Recovered/Resolved]
